FAERS Safety Report 8414504-8 (Version None)
Quarter: 2012Q2

REPORT INFORMATION
  Report Type: 
  Country: None (occurrence: None)
  Receive Date: 20120605
  Receipt Date: 20120529
  Transmission Date: 20120825
  Serious: Yes (Other)
  Sender: FDA-Public Use
  Company Number: US-JNJFOC-20120520791

PATIENT
  Sex: Male
  Weight: 140.62 kg

DRUGS (3)
  1. GLUCOSAMINE / CHONDROITIN [Concomitant]
     Indication: ARTHRITIS
     Route: 048
     Dates: start: 20020101
  2. STELARA [Suspect]
     Indication: PSORIATIC ARTHROPATHY
     Route: 058
     Dates: start: 20100101
  3. MULTI-VITAMINS [Concomitant]
     Route: 048

REACTIONS (4)
  - TYPE 2 DIABETES MELLITUS [None]
  - FATIGUE [None]
  - THERAPEUTIC RESPONSE DECREASED [None]
  - FEELING ABNORMAL [None]
